FAERS Safety Report 18900740 (Version 2)
Quarter: 2021Q2

REPORT INFORMATION
  Report Type: Spontaneous
  Country: BR (occurrence: BR)
  Receive Date: 20210216
  Receipt Date: 20210622
  Transmission Date: 20210717
  Serious: Yes (Other)
  Sender: FDA-Public Use
  Company Number: NVSC2020BR312336

PATIENT
  Sex: Female

DRUGS (3)
  1. ESTRADOT [Suspect]
     Active Substance: ESTRADIOL
     Dosage: 0.5 DF (50 MCG), BIW(EVERY 3 DAYS)
     Route: 065
  2. ESTRADOT [Suspect]
     Active Substance: ESTRADIOL
     Indication: PRODUCT USED FOR UNKNOWN INDICATION
     Dosage: 1 DF(100 MCG)
     Route: 065
     Dates: start: 2001
  3. ESTRADOT [Suspect]
     Active Substance: ESTRADIOL
     Dosage: 2 DF, UNKNOWN (100MCG)
     Route: 065

REACTIONS (7)
  - Insomnia [Unknown]
  - Hot flush [Unknown]
  - Intentional product use issue [Not Recovered/Not Resolved]
  - Drug dependence [Unknown]
  - Weight increased [Unknown]
  - Weight decreased [Unknown]
  - Alopecia [Unknown]
